FAERS Safety Report 9789682 (Version 2)
Quarter: 2014Q1

REPORT INFORMATION
  Report Type: Spontaneous
  Country: US (occurrence: US)
  Receive Date: 20131231
  Receipt Date: 20140124
  Transmission Date: 20141002
  Serious: Yes (Death, Hospitalization)
  Sender: FDA-Public Use
  Company Number: US-AMGEN-USASP2013090928

PATIENT
  Age: 82 Year
  Sex: Female
  Weight: 49.43 kg

DRUGS (1)
  1. PROLIA [Suspect]
     Indication: OSTEOPOROSIS
     Dosage: 60 MG, Q6MO
     Route: 058
     Dates: start: 20130204, end: 20130204

REACTIONS (2)
  - Cardiac failure congestive [Fatal]
  - Aortic stenosis [Unknown]
